FAERS Safety Report 8521060-2 (Version None)
Quarter: 2012Q3

REPORT INFORMATION
  Report Type: 
  Country: None (occurrence: None)
  Receive Date: 20120712
  Receipt Date: 20120712
  Transmission Date: 20120928
  Serious: Yes (Hospitalization)
  Sender: FDA-Public Use
  Company Number: None

PATIENT
  Age: 39 Year
  Sex: Female
  Weight: 161.0269 kg

DRUGS (1)
  1. ESCITALOPRAM [Suspect]
     Indication: GENERALISED ANXIETY DISORDER
     Dosage: 20 MG DAILY PO
     Route: 048
     Dates: start: 20120628, end: 20120707

REACTIONS (10)
  - PALPITATIONS [None]
  - ANXIETY [None]
  - CHILLS [None]
  - ASTHENIA [None]
  - BLOOD PRESSURE INCREASED [None]
  - FEELING OF BODY TEMPERATURE CHANGE [None]
  - HYPERHIDROSIS [None]
  - HYPOAESTHESIA [None]
  - PANIC ATTACK [None]
  - SOMNOLENCE [None]
